FAERS Safety Report 4650198-5 (Version None)
Quarter: 2005Q2

REPORT INFORMATION
  Report Type: 
  Country: None (occurrence: None)
  Receive Date: 20050428
  Receipt Date: 20050413
  Transmission Date: 20051028
  Serious: Yes (Hospitalization)
  Sender: FDA-Public Use
  Company Number: 2005JP000885

PATIENT
  Age: 18 Year
  Sex: Female

DRUGS (3)
  1. PROGRAF [Suspect]
     Indication: BONE MARROW TRANSPLANT
  2. METHOTREXATE [Concomitant]
  3. CYTARABINE [Concomitant]

REACTIONS (1)
  - ADENOVIRAL HAEMORRHAGIC CYSTITIS [None]
